FAERS Safety Report 17982057 (Version 1)
Quarter: 2020Q3

REPORT INFORMATION
  Report Type: Spontaneous
  Country: US (occurrence: US)
  Receive Date: 20200702
  Receipt Date: 20200702
  Transmission Date: 20201103
  Serious: Yes (Life-Threatening, Hospitalization)
  Sender: FDA-Public Use
  Company Number: None

PATIENT
  Age: 48 Year
  Sex: Female
  Weight: 76.5 kg

DRUGS (1)
  1. NYQUIL SEVERE PLUS VAPOCOOL COLD AND FLU [Suspect]
     Active Substance: ACETAMINOPHEN\DEXTROMETHORPHAN HYDROBROMIDE\DOXYLAMINE SUCCINATE\PHENYLEPHRINE HYDROCHLORIDE
     Indication: PAIN
     Dosage: ?          OTHER FREQUENCY:NIGHT;?
     Route: 048
     Dates: start: 20200614, end: 20200616

REACTIONS (7)
  - Nausea [None]
  - Dyspepsia [None]
  - Diarrhoea [None]
  - Asthenia [None]
  - Melaena [None]
  - Vomiting [None]
  - Abdominal pain upper [None]

NARRATIVE: CASE EVENT DATE: 20200618
